FAERS Safety Report 21992918 (Version 1)
Quarter: 2023Q1

REPORT INFORMATION
  Report Type: Spontaneous
  Country: US (occurrence: None)
  Receive Date: 20230215
  Receipt Date: 20230215
  Transmission Date: 20230418
  Serious: Yes (Hospitalization, Other)
  Sender: FDA-Public Use
  Company Number: US-MLMSERVICE-20230127-4066184-1

PATIENT
  Age: 33 Year
  Sex: Male

DRUGS (2)
  1. DEXAMETHASONE [Suspect]
     Active Substance: DEXAMETHASONE
     Indication: Disseminated cryptococcosis
     Dosage: TAPER
     Route: 065
  2. DEXAMETHASONE [Suspect]
     Active Substance: DEXAMETHASONE
     Indication: Cryptococcosis

REACTIONS (2)
  - Hypogammaglobulinaemia [Unknown]
  - Meningitis cryptococcal [Unknown]
